FAERS Safety Report 24680652 (Version 2)
Quarter: 2025Q1

REPORT INFORMATION
  Report Type: Spontaneous
  Country: US (occurrence: US)
  Receive Date: 20241129
  Receipt Date: 20250103
  Transmission Date: 20250409
  Serious: Yes (Hospitalization, Other)
  Sender: RIGEL PHARMACEUTICALS
  Company Number: US-RIGEL PHARMACEUTICALS, INC-20241100119

PATIENT
  Sex: Male

DRUGS (4)
  1. REZLIDHIA [Suspect]
     Active Substance: OLUTASIDENIB
     Indication: Brain neoplasm malignant
     Dosage: 150 MG, BID
     Route: 048
     Dates: start: 202402
  2. REZLIDHIA [Suspect]
     Active Substance: OLUTASIDENIB
     Dosage: 150 MG, QD
     Route: 048
     Dates: start: 20240210
  3. LYNPARZA [Concomitant]
     Active Substance: OLAPARIB
     Indication: Brain neoplasm malignant
     Dosage: 150 MG, QD
     Route: 048
     Dates: start: 20240402, end: 20241117
  4. TEMODAR [Concomitant]
     Active Substance: TEMOZOLOMIDE
     Indication: Product used for unknown indication

REACTIONS (6)
  - Acute respiratory failure [Unknown]
  - Pneumonia [Unknown]
  - Lymphopenia [Unknown]
  - Thrombocytopenia [Unknown]
  - Off label use [Unknown]
  - Product prescribing issue [Unknown]

NARRATIVE: CASE EVENT DATE: 20240101
